FAERS Safety Report 10143939 (Version 1)
Quarter: 2014Q2

REPORT INFORMATION
  Report Type: Spontaneous
  Country: US (occurrence: US)
  Receive Date: 20140430
  Receipt Date: 20140430
  Transmission Date: 20141212
  Serious: No
  Sender: FDA-Public Use
  Company Number: US-BAYER-2014-062703

PATIENT
  Age: 60 Year
  Sex: Male

DRUGS (1)
  1. DESONATE GEL [Suspect]
     Indication: RASH
     Dosage: UNK UNK, BID

REACTIONS (3)
  - Rash [None]
  - Erythema [None]
  - Product physical consistency issue [None]
